FAERS Safety Report 12435964 (Version 2)
Quarter: 2017Q3

REPORT INFORMATION
  Report Type: Spontaneous
  Country: IT (occurrence: IT)
  Receive Date: 20160604
  Receipt Date: 20170705
  Transmission Date: 20171127
  Serious: Yes (Life-Threatening, Hospitalization, Other)
  Sender: FDA-Public Use
  Company Number: IT-SUN PHARMACEUTICAL INDUSTRIES LTD-2015R1-103878

PATIENT
  Age: 71 Year
  Sex: Male

DRUGS (7)
  1. QUETIAPINE. [Suspect]
     Active Substance: QUETIAPINE
     Indication: BIPOLAR DISORDER
     Dosage: 10 DF, SINGLE
     Route: 048
  2. PREGABALIN. [Concomitant]
     Active Substance: PREGABALIN
     Indication: BIPOLAR DISORDER
     Dosage: 75 MG, DAILY
     Route: 065
  3. VENLAFLAXINE [Concomitant]
     Active Substance: VENLAFAXINE HYDROCHLORIDE
     Indication: BIPOLAR DISORDER
     Dosage: 75 MG, DAILY
     Route: 065
  4. METOPROLOL. [Concomitant]
     Active Substance: METOPROLOL
     Indication: HYPERTENSION
     Dosage: UNK
     Route: 065
  5. SILODOSIN [Concomitant]
     Active Substance: SILODOSIN
     Indication: BENIGN PROSTATIC HYPERPLASIA
     Dosage: UNK
     Route: 065
  6. METFORMIN [Concomitant]
     Active Substance: METFORMIN HYDROCHLORIDE
     Indication: TYPE 2 DIABETES MELLITUS
     Dosage: UNK
     Route: 065
  7. LAMOTRIGINE. [Concomitant]
     Active Substance: LAMOTRIGINE
     Indication: BIPOLAR DISORDER
     Dosage: 100 MG, DAILY
     Route: 065

REACTIONS (11)
  - Intentional overdose [Recovered/Resolved]
  - Suicide attempt [Unknown]
  - Hypotension [Recovered/Resolved]
  - Coma [Recovered/Resolved]
  - Staphylococcal sepsis [Recovered/Resolved]
  - Respiratory failure [Recovered/Resolved]
  - Electrocardiogram QT prolonged [Recovered/Resolved]
  - Sinus tachycardia [Recovered/Resolved]
  - Supraventricular tachycardia [Recovered/Resolved]
  - Agitation [Recovered/Resolved]
  - Acidosis [Recovered/Resolved]
